FAERS Safety Report 9054212 (Version 5)
Quarter: 2014Q2

REPORT INFORMATION
  Report Type: Spontaneous
  Country: US (occurrence: US)
  Receive Date: 20130208
  Receipt Date: 20140419
  Transmission Date: 20141212
  Serious: Yes (Hospitalization)
  Sender: FDA-Public Use
  Company Number: US-B.I. PHARMACEUTICALS,INC./RIDGEFIELD-2013-BI-02900BP

PATIENT
  Sex: Male
  Weight: 97.07 kg

DRUGS (8)
  1. PRADAXA [Suspect]
     Indication: ATRIAL FIBRILLATION
     Dosage: 300 MG
     Route: 065
     Dates: start: 20110118, end: 201103
  2. VITAMIN C [Concomitant]
     Route: 065
  3. LASIX [Concomitant]
     Dosage: 40 MG
     Route: 048
  4. LEXAPRO [Concomitant]
     Dosage: 10 MG
     Route: 048
  5. ENTERIC COATED ASPIRIN [Concomitant]
     Dosage: 81 MG
     Route: 048
  6. COREG CR [Concomitant]
     Dosage: 20 MG
     Route: 048
  7. POTASSIUM CHLORIDE [Concomitant]
     Dosage: 10 MEQ
     Route: 048
  8. COLD MEDS [Concomitant]
     Indication: NASOPHARYNGITIS
     Route: 065

REACTIONS (1)
  - Gastrointestinal haemorrhage [Unknown]
